FAERS Safety Report 5241842-2 (Version None)
Quarter: 2007Q1

REPORT INFORMATION
  Report Type: 
  Country: None (occurrence: None)
  Receive Date: 20061201
  Receipt Date: 20060801
  Transmission Date: 20070707
  Serious: No
  Sender: FDA-Public Use
  Company Number: 2006PV018621

PATIENT
  Age: 59 Year
  Sex: Female
  Weight: 87.5442 kg

DRUGS (4)
  1. BYETTA [Suspect]
     Indication: DIABETES MELLITUS NON-INSULIN-DEPENDENT
     Dosage: SEE IMAGE
     Route: 058
     Dates: start: 20050101, end: 20050101
  2. BYETTA [Suspect]
     Indication: DIABETES MELLITUS NON-INSULIN-DEPENDENT
     Dosage: SEE IMAGE
     Route: 058
     Dates: start: 20050101
  3. NPH INSULIN [Concomitant]
  4. HUMALOG [Concomitant]

REACTIONS (6)
  - BLOOD GLUCOSE INCREASED [None]
  - BONE PAIN [None]
  - DRUG EFFECT INCREASED [None]
  - ENERGY INCREASED [None]
  - MUSCLE SPASMS [None]
  - WEIGHT DECREASED [None]
